FAERS Safety Report 7544060-8 (Version None)
Quarter: 2011Q2

REPORT INFORMATION
  Report Type: 
  Country: None (occurrence: None)
  Receive Date: 20110613
  Receipt Date: 20051017
  Transmission Date: 20111010
  Serious: Yes (Hospitalization)
  Sender: FDA-Public Use
  Company Number: PHHO2005JP16553

PATIENT
  Sex: Female

DRUGS (4)
  1. PERDIPINE [Concomitant]
     Indication: HYPERTENSION
     Dates: end: 20040527
  2. MUCOSTA [Concomitant]
     Indication: GASTRITIS
     Dates: end: 20040527
  3. DIOVAN [Suspect]
     Dosage: 80 MG, QD
     Route: 048
     Dates: start: 20030409, end: 20040527
  4. NITOROL [Concomitant]
     Indication: ANGINA PECTORIS
     Dates: end: 20040527

REACTIONS (1)
  - MENINGITIS [None]
